FAERS Safety Report 6139342-0 (Version None)
Quarter: 2009Q2

REPORT INFORMATION
  Report Type: 
  Country: None (occurrence: None)
  Receive Date: 20090401
  Receipt Date: 20090324
  Transmission Date: 20091009
  Serious: Yes (Life-Threatening, Hospitalization)
  Sender: FDA-Public Use
  Company Number: PHHY2008JP13625

PATIENT
  Sex: Female

DRUGS (5)
  1. EXJADE [Suspect]
     Indication: MYELODYSPLASTIC SYNDROME
     Dosage: 1000 MG, QD
     Route: 048
     Dates: start: 20080625, end: 20080704
  2. EXJADE [Suspect]
     Indication: IRON OVERLOAD
  3. NEORAL [Concomitant]
     Dosage: 250 MG
     Route: 048
     Dates: start: 20080929
  4. NEORAL [Concomitant]
     Dosage: 150 MG
     Route: 048
  5. NEORAL [Concomitant]
     Dosage: 100 MG
     Route: 048

REACTIONS (17)
  - ALANINE AMINOTRANSFERASE INCREASED [None]
  - ASPARTATE AMINOTRANSFERASE INCREASED [None]
  - BLOOD ALKALINE PHOSPHATASE INCREASED [None]
  - BLOOD LACTATE DEHYDROGENASE INCREASED [None]
  - EPSTEIN-BARR VIRUS INFECTION [None]
  - GAMMA-GLUTAMYLTRANSFERASE INCREASED [None]
  - HAEMATOCRIT DECREASED [None]
  - HAEMOGLOBIN DECREASED [None]
  - LIVER DISORDER [None]
  - PANCYTOPENIA [None]
  - PLATELET COUNT DECREASED [None]
  - PROTEIN URINE PRESENT [None]
  - PYREXIA [None]
  - RASH GENERALISED [None]
  - RED BLOOD CELL COUNT DECREASED [None]
  - TOXIC SKIN ERUPTION [None]
  - WHITE BLOOD CELL COUNT DECREASED [None]
